FAERS Safety Report 4460097-X (Version None)
Quarter: 2004Q3

REPORT INFORMATION
  Report Type: 
  Country: None (occurrence: None)
  Receive Date: 20040928
  Receipt Date: 20031205
  Transmission Date: 20050211
  Serious: No
  Sender: FDA-Public Use
  Company Number: US-GLAXOSMITHKLINE-A0442190A

PATIENT
  Age: 63 Year
  Sex: Female

DRUGS (10)
  1. SEREVENT [Suspect]
     Indication: ASTHMA
     Dosage: 1PUFF TWICE PER DAY
     Route: 055
     Dates: start: 20031201
  2. PULMICORT [Concomitant]
  3. MYAMBUTOL [Concomitant]
  4. RIFAMPIN [Concomitant]
  5. CYCLOSERINE [Concomitant]
  6. CLOFAZIMINE [Concomitant]
  7. NORTRIPTYLINE HCL [Concomitant]
  8. RESTORIL [Concomitant]
  9. ACTONEL [Concomitant]
  10. BECONASE AQ [Concomitant]

REACTIONS (1)
  - MYDRIASIS [None]
